FAERS Safety Report 4305607-8 (Version None)
Quarter: 2004Q1

REPORT INFORMATION
  Report Type: 
  Country: None (occurrence: None)
  Receive Date: 20040226
  Receipt Date: 20031211
  Transmission Date: 20041129
  Serious: No
  Sender: FDA-Public Use
  Company Number: US-BRISTOL-MYERS SQUIBB COMPANY-12456869

PATIENT
  Age: 15 Year
  Sex: Male

DRUGS (7)
  1. ABILIFY [Suspect]
     Route: 048
     Dates: start: 20031104, end: 20031113
  2. DEPAKOTE [Concomitant]
  3. RISPERDAL [Concomitant]
  4. BENADRYL [Concomitant]
  5. PROVERA [Concomitant]
  6. CALCITRIOL [Concomitant]
  7. KEPPRA [Concomitant]

REACTIONS (3)
  - ALANINE AMINOTRANSFERASE INCREASED [None]
  - ASPARTATE AMINOTRANSFERASE INCREASED [None]
  - BLOOD ALKALINE PHOSPHATASE INCREASED [None]
